FAERS Safety Report 9663796 (Version 2)
Quarter: 2013Q4

REPORT INFORMATION
  Report Type: Spontaneous
  Country: CA (occurrence: CA)
  Receive Date: 20131101
  Receipt Date: 20131101
  Transmission Date: 20140711
  Serious: Yes (Hospitalization)
  Sender: FDA-Public Use
  Company Number: CA-BAYER-2013-127215

PATIENT
  Age: 74 Year
  Sex: Male

DRUGS (5)
  1. ALEVE [Suspect]
     Indication: ARTHRITIS
     Dosage: UNK
  2. ALEVE [Suspect]
     Indication: PAIN
  3. ALPRENOLOL [Concomitant]
  4. DIGOXIN [Concomitant]
  5. WARFARIN [Concomitant]

REACTIONS (2)
  - Blood pressure systolic increased [Recovered/Resolved]
  - Chest pain [Recovered/Resolved]
